FAERS Safety Report 9709642 (Version 2)
Quarter: 2013Q4

REPORT INFORMATION
  Report Type: Spontaneous
  Country: FR (occurrence: FR)
  Receive Date: 20131126
  Receipt Date: 20131210
  Transmission Date: 20140711
  Serious: Yes (Life-Threatening)
  Sender: FDA-Public Use
  Company Number: FR-009507513-1311FRA008977

PATIENT
  Age: 75 Year
  Sex: Male

DRUGS (7)
  1. TIENAM 500MG/500MG, POUDRE POUR PERFUSION [Suspect]
     Indication: INTERSTITIAL LUNG DISEASE
     Dosage: 500 MG, QID
     Route: 042
     Dates: start: 20131030
  2. CIFLOX (CIPROFLOXACIN HYDROCHLORIDE) [Suspect]
     Indication: INTERSTITIAL LUNG DISEASE
     Dosage: 400 MG, BID
     Route: 042
     Dates: start: 20131101, end: 20131106
  3. LASILIX [Suspect]
     Indication: PRODUCT USED FOR UNKNOWN INDICATION
     Dosage: 40 MG, QD
     Route: 042
     Dates: start: 20131025, end: 20131106
  4. ASPEGIC [Suspect]
     Indication: PRODUCT USED FOR UNKNOWN INDICATION
     Dosage: 100 MG, QD
     Route: 042
     Dates: start: 20131025
  5. ROVAMYCINE [Suspect]
     Indication: INTERSTITIAL LUNG DISEASE
     Dosage: 1.5 MILLION IU, TID
     Route: 042
  6. INEXIUM [Suspect]
     Indication: STRESS ULCER
     Dosage: 40 MG, QD
     Route: 042
     Dates: start: 20131025
  7. SOLU-MEDROL [Suspect]
     Indication: PRODUCT USED FOR UNKNOWN INDICATION
     Dosage: 40 MG, QD
     Route: 042
     Dates: start: 20131026

REACTIONS (1)
  - Cholestasis [Unknown]
